FAERS Safety Report 16859125 (Version 5)
Quarter: 2020Q1

REPORT INFORMATION
  Report Type: Spontaneous
  Country: US (occurrence: US)
  Receive Date: 20190926
  Receipt Date: 20200224
  Transmission Date: 20200409
  Serious: Yes (Other)
  Sender: FDA-Public Use
  Company Number: US-VERASTEM-2019-00089

PATIENT

DRUGS (2)
  1. COPIKTRA [Suspect]
     Active Substance: DUVELISIB
     Indication: CHRONIC LYMPHOCYTIC LEUKAEMIA
     Dosage: 15 MG, BID
     Route: 048
     Dates: start: 20190515, end: 2019
  2. COPIKTRA [Suspect]
     Active Substance: DUVELISIB
     Dosage: 15 MG, BID
     Route: 048
     Dates: start: 20191220

REACTIONS (9)
  - Carotid artery disease [Unknown]
  - Rectal haemorrhage [Unknown]
  - Malaise [Recovered/Resolved]
  - White blood cell count increased [Unknown]
  - Acne [Recovered/Resolved]
  - Prescribed underdose [Not Recovered/Not Resolved]
  - Agitation [Unknown]
  - Nausea [Recovered/Resolved]
  - Nervousness [Unknown]

NARRATIVE: CASE EVENT DATE: 201905
